FAERS Safety Report 25144657 (Version 1)
Quarter: 2025Q2

REPORT INFORMATION
  Report Type: Spontaneous
  Country: US (occurrence: US)
  Receive Date: 20250401
  Receipt Date: 20250401
  Transmission Date: 20250716
  Serious: Yes (Other)
  Sender: UNICHEM
  Company Number: US-UNICHEM LABORATORIES LIMITED-UNI-2025-US-001598

PATIENT

DRUGS (4)
  1. CLONIDINE [Suspect]
     Active Substance: CLONIDINE
     Indication: Product used for unknown indication
     Route: 065
  2. DILTIAZEM [Suspect]
     Active Substance: DILTIAZEM
     Indication: Product used for unknown indication
     Route: 065
  3. DOXAZOSIN [Concomitant]
     Active Substance: DOXAZOSIN MESYLATE
     Indication: Product used for unknown indication
     Route: 065
  4. MULTI-VITAMIN PRODUCTS [Concomitant]
     Indication: Product used for unknown indication
     Route: 065

REACTIONS (6)
  - Thrombosis [Unknown]
  - Blister [Unknown]
  - Rash [Unknown]
  - Constipation [Unknown]
  - Bradycardia [Unknown]
  - Contraindicated product administered [Unknown]
